FAERS Safety Report 24768763 (Version 1)
Quarter: 2024Q4

REPORT INFORMATION
  Report Type: Report from Study
  Country: CO (occurrence: CO)
  Receive Date: 20241224
  Receipt Date: 20241224
  Transmission Date: 20250114
  Serious: Yes (Death, Hospitalization, Other)
  Sender: UCB
  Company Number: CO-UCBSA-2024066437

PATIENT
  Age: 84 Year
  Sex: Female

DRUGS (3)
  1. ROTIGOTINE [Suspect]
     Active Substance: ROTIGOTINE
     Indication: Parkinson^s disease
     Dosage: 4 MILLIGRAM, ONCE DAILY (QD)
     Route: 062
     Dates: start: 20200402, end: 20201020
  2. ROTIGOTINE [Suspect]
     Active Substance: ROTIGOTINE
     Dosage: 6 MILLIGRAM, ONCE DAILY (QD)
     Route: 062
     Dates: start: 20201021, end: 20211213
  3. ROTIGOTINE [Suspect]
     Active Substance: ROTIGOTINE
     Dosage: 8 MILLIGRAM, ONCE DAILY (QD)
     Route: 062
     Dates: start: 20211214, end: 20241014

REACTIONS (6)
  - Respiratory arrest [Fatal]
  - Sepsis [Unknown]
  - Lung disorder [Unknown]
  - Parkinson^s disease [Unknown]
  - Greater trochanteric pain syndrome [Unknown]
  - Palliative care [Unknown]

NARRATIVE: CASE EVENT DATE: 20240801
